FAERS Safety Report 7337016-1 (Version None)
Quarter: 2011Q1

REPORT INFORMATION
  Report Type: 
  Country: None (occurrence: None)
  Receive Date: 20110308
  Receipt Date: 20110222
  Transmission Date: 20110831
  Serious: Yes (Hospitalization)
  Sender: FDA-Public Use
  Company Number: BR-BAYER-2011-017722

PATIENT
  Age: 67 Year
  Sex: Male
  Weight: 63 kg

DRUGS (6)
  1. BUMETANIDE [Concomitant]
     Dosage: 0.5 MG, QD
     Route: 048
     Dates: start: 20060601
  2. ATENOLOL [Concomitant]
     Dosage: 25 MG, BID
     Route: 048
     Dates: start: 20060606
  3. SORAFENIB (RAF KINASE INHIBITOR) [Suspect]
     Indication: RENAL CELL CARCINOMA
     Dosage: 200 MG, BID
     Route: 048
     Dates: start: 20100304
  4. SPIRONOLACTONE [Concomitant]
     Dosage: 25 MG, TWICE WEEKLY
     Route: 048
     Dates: start: 20060601
  5. EUTHYROX [Concomitant]
     Dosage: 75 MG, QD
     Route: 048
     Dates: start: 20061201
  6. AMLODIPINE [Concomitant]
     Dosage: 25 MG, QD
     Route: 048
     Dates: start: 20060601

REACTIONS (1)
  - DEEP VEIN THROMBOSIS [None]
